FAERS Safety Report 9769962 (Version 2)
Quarter: 2013Q4

REPORT INFORMATION
  Report Type: Spontaneous
  Country: US (occurrence: US)
  Receive Date: 20131218
  Receipt Date: 20131218
  Transmission Date: 20140711
  Serious: No
  Sender: FDA-Public Use
  Company Number: US-VERTEX PHARMACEUTICALS INC-AE-2011-000766

PATIENT
  Age: 44 Year
  Sex: Male
  Weight: 72.73 kg

DRUGS (7)
  1. INCIVEK [Suspect]
     Indication: HEPATITIS C
     Route: 048
     Dates: start: 20110731
  2. PEGASYS [Concomitant]
     Indication: HEPATITIS C
     Route: 058
     Dates: start: 20110731
  3. RIBAVIRIN [Concomitant]
     Indication: HEPATITIS C
     Route: 048
     Dates: start: 20110731
  4. MORPHINE XR [Concomitant]
     Indication: BACK PAIN
  5. PROVIGIL [Concomitant]
     Route: 048
  6. CYMBALTA [Concomitant]
  7. AMITRIPTYLINE [Concomitant]

REACTIONS (2)
  - Abdominal pain upper [Recovered/Resolved]
  - Proctalgia [Recovered/Resolved]
